FAERS Safety Report 7691001-9 (Version None)
Quarter: 2011Q3

REPORT INFORMATION
  Report Type: 
  Country: None (occurrence: None)
  Receive Date: 20110818
  Receipt Date: 20110817
  Transmission Date: 20111222
  Serious: Yes (Hospitalization, Disabling)
  Sender: FDA-Public Use
  Company Number: CA-ROCHE-759552

PATIENT

DRUGS (6)
  1. PEGASYS [Suspect]
     Route: 065
     Dates: end: 20110224
  2. TENOFOVIR DISOPROXIL FUMARATE [Concomitant]
     Route: 048
  3. ATAZANAVIR [Concomitant]
     Route: 048
  4. ABACAVIR SULFATE AND LAMIVUDINE [Concomitant]
     Dosage: 1 TABLET
     Route: 048
  5. RITONAVIR [Concomitant]
     Route: 048
  6. RIBAVIRIN [Suspect]
     Route: 048
     Dates: end: 20110224

REACTIONS (1)
  - MYASTHENIA GRAVIS [None]
